FAERS Safety Report 5625871-2 (Version None)
Quarter: 2008Q1

REPORT INFORMATION
  Report Type: 
  Country: None (occurrence: None)
  Receive Date: 20080207
  Receipt Date: 20080207
  Transmission Date: 20080703
  Serious: No
  Sender: FDA-Public Use
  Company Number: None

PATIENT
  Age: 34 Year
  Sex: Female

DRUGS (1)
  1. HEPARIN [Suspect]
     Dosage: 5000 UNITS Q8H SQ
     Route: 058
     Dates: start: 20080205, end: 20080205

REACTIONS (1)
  - RASH [None]
